FAERS Safety Report 5727582-1 (Version None)
Quarter: 2008Q2

REPORT INFORMATION
  Report Type: 
  Country: None (occurrence: None)
  Receive Date: 20080505
  Receipt Date: 20080424
  Transmission Date: 20081010
  Serious: No
  Sender: FDA-Public Use
  Company Number: US-ROCHE-561220

PATIENT
  Sex: Female

DRUGS (3)
  1. ISOTRETINOIN [Suspect]
     Indication: DRUG USE FOR UNKNOWN INDICATION
     Dosage: PATIENT WAS DISPENSED ACCUTANE 10 MG CAPSULE FOUR TIMES ON 14 MARCH 2008
     Route: 065
     Dates: end: 20080418
  2. CLARAVIS [Suspect]
     Indication: DRUG USE FOR UNKNOWN INDICATION
     Dosage: PATIENT WAS DISPENSED CLARAVIS 20MG CAPSULE TWICE ON 25JAN2008 AND 30MG CAP. FOUR TIMES ON 25JAN2008
     Route: 065
     Dates: start: 20080125
  3. ORAL CONTRACEPTIVE NOS [Concomitant]

REACTIONS (2)
  - NO ADVERSE EVENT [None]
  - PREGNANCY [None]
